FAERS Safety Report 5132225-4 (Version None)
Quarter: 2006Q4

REPORT INFORMATION
  Report Type: 
  Country: None (occurrence: None)
  Receive Date: 20061017
  Receipt Date: 20061002
  Transmission Date: 20070319
  Serious: Yes (Hospitalization)
  Sender: FDA-Public Use
  Company Number: US200608003616

PATIENT
  Age: 53 Year
  Sex: Female

DRUGS (5)
  1. HUMALOG [Suspect]
     Indication: DIABETES MELLITUS
     Dosage: AS NEEDED
     Dates: start: 20060301
  2. HUMULIN 70/30 [Suspect]
     Dates: end: 20060301
  3. ALTACE [Concomitant]
  4. PROTONIX [Concomitant]
  5. LANTUS [Concomitant]

REACTIONS (3)
  - NEPHROLITHIASIS [None]
  - PAIN [None]
  - VISUAL ACUITY REDUCED [None]
